FAERS Safety Report 21477296 (Version 2)
Quarter: 2023Q4

REPORT INFORMATION
  Report Type: Report from Study
  Country: US (occurrence: US)
  Receive Date: 20221019
  Receipt Date: 20231204
  Transmission Date: 20240110
  Serious: Yes (Other)
  Sender: FDA-Public Use
  Company Number: US-ABBVIE-4159124

PATIENT
  Sex: Male

DRUGS (2)
  1. HUMIRA [Suspect]
     Active Substance: ADALIMUMAB
     Indication: Rheumatoid arthritis
     Dosage: FORM STRENGTH-40 MG CITRATE FREE
     Route: 058
     Dates: start: 20220705
  2. HUMIRA [Suspect]
     Active Substance: ADALIMUMAB
     Dosage: FORM STRENGTH- 40 MG CITRATE FREE
     Route: 058

REACTIONS (3)
  - Precancerous condition [Unknown]
  - Infected skin ulcer [Not Recovered/Not Resolved]
  - Cardiac disorder [Not Recovered/Not Resolved]
